FAERS Safety Report 8887517 (Version 1)
Quarter: 2012Q4

REPORT INFORMATION
  Report Type: Spontaneous
  Country: US (occurrence: None)
  Receive Date: 20121101
  Receipt Date: 20121101
  Transmission Date: 20130627
  Serious: Yes (Hospitalization)
  Sender: FDA-Public Use
  Company Number: None

PATIENT
  Age: 64 Year
  Sex: Female
  Weight: 110.5 kg

DRUGS (16)
  1. ATORVASTATIN [Suspect]
     Indication: HYPERLIPIDEMIA
     Route: 048
  2. DICLOFENAC [Concomitant]
  3. HUMALOG [Concomitant]
  4. COLCHICINE [Concomitant]
  5. BUMETADINE [Concomitant]
  6. ASA/DIPYRIDAMOLE [Concomitant]
  7. ASA [Concomitant]
  8. FISH OIL [Concomitant]
  9. LANTUS [Concomitant]
  10. OMEPRAZOLE [Concomitant]
  11. POTASSIUM CL [Concomitant]
  12. DILTIAZEM [Concomitant]
  13. VALSARTAN [Concomitant]
  14. ALLOPURINOL [Concomitant]
  15. CLONIDINE [Concomitant]
  16. NEBIVOLOL [Concomitant]

REACTIONS (9)
  - Muscular weakness [None]
  - Pain [None]
  - Atrioventricular block first degree [None]
  - Bundle branch block right [None]
  - Blood creatine phosphokinase increased [None]
  - Troponin increased [None]
  - Hepatic enzyme increased [None]
  - Rhabdomyolysis [None]
  - Blood creatinine abnormal [None]
